FAERS Safety Report 15196148 (Version 1)
Quarter: 2018Q3

REPORT INFORMATION
  Report Type: Spontaneous
  Country: US (occurrence: US)
  Receive Date: 20180626
  Receipt Date: 20180626
  Transmission Date: 20181010
  Serious: Yes (Other)
  Sender: FDA-Public Use
  Company Number: None

PATIENT
  Age: 35 Year
  Sex: Female

DRUGS (1)
  1. BUPRENORPHINE NALOXONE 8?2MG TABLET [Suspect]
     Active Substance: BUPRENORPHINE\NALOXONE
     Indication: DRUG USE DISORDER
     Dosage: OTHER ROUTE:ORAL, SUBLINGUAL, 8?2 MG 2 TABS DAILY?
     Route: 048
     Dates: start: 20180205, end: 20180319

REACTIONS (5)
  - Dry skin [None]
  - Constipation [None]
  - Peripheral swelling [None]
  - Headache [None]
  - Malaise [None]

NARRATIVE: CASE EVENT DATE: 20180430
